FAERS Safety Report 12654675 (Version 1)
Quarter: 2016Q3

REPORT INFORMATION
  Report Type: Spontaneous
  Country: US (occurrence: None)
  Receive Date: 20160815
  Receipt Date: 20160815
  Transmission Date: 20161109
  Serious: Yes (Disabling, Other)
  Sender: FDA-Public Use
  Company Number: None

PATIENT
  Age: 50 Year
  Sex: Female

DRUGS (28)
  1. GLASSES [Concomitant]
  2. TRAMADOL. [Concomitant]
     Active Substance: TRAMADOL
  3. ADVAIR HFA [Concomitant]
     Active Substance: FLUTICASONE PROPIONATE\SALMETEROL XINAFOATE
  4. TYLENOL [Concomitant]
     Active Substance: ACETAMINOPHEN
  5. ZOCOR [Concomitant]
     Active Substance: SIMVASTATIN
  6. SEROQUEL [Concomitant]
     Active Substance: QUETIAPINE FUMARATE
  7. PANTOPRAZOLE [Concomitant]
     Active Substance: PANTOPRAZOLE SODIUM
  8. RATANIDINE [Concomitant]
  9. DIAMOX SEQUELS [Concomitant]
     Active Substance: ACETAZOLAMIDE
  10. JANUVIA [Concomitant]
     Active Substance: SITAGLIPTIN PHOSPHATE
  11. LASIX [Concomitant]
     Active Substance: FUROSEMIDE
  12. RESTORA-PROAIR [Concomitant]
  13. POTASSIUM [Concomitant]
     Active Substance: POTASSIUM
  14. CYMBLTA [Concomitant]
  15. ANTIVERT [Concomitant]
     Active Substance: MECLIZINE HYDROCHLORIDE
  16. VITAMINS ONE A DAY [Concomitant]
  17. ALPHAGAN P [Concomitant]
     Active Substance: BRIMONIDINE TARTRATE
  18. LATANOPROST. [Concomitant]
     Active Substance: LATANOPROST
  19. SUCRALFATE. [Concomitant]
     Active Substance: SUCRALFATE
  20. LISINOPRIL. [Concomitant]
     Active Substance: LISINOPRIL
  21. VYVANSE [Concomitant]
     Active Substance: LISDEXAMFETAMINE DIMESYLATE
  22. HUMALOG MIX75/25 KWIKPEN [Suspect]
     Active Substance: INSULIN LISPRO
     Indication: DIABETES MELLITUS
     Dosage: 75/25 20 UNITS MAYBE 20 UNITS TWICE A DAY BY INJECTION
     Dates: start: 20160122
  23. CANE [Concomitant]
  24. LEVOTHYROXINE. [Concomitant]
     Active Substance: LEVOTHYROXINE
  25. ASPIRIN. [Concomitant]
     Active Substance: ASPIRIN
  26. LYRICA [Concomitant]
     Active Substance: PREGABALIN
  27. NYSTATIN. [Concomitant]
     Active Substance: NYSTATIN
  28. ZANAFLEX [Suspect]
     Active Substance: TIZANIDINE HYDROCHLORIDE

REACTIONS (4)
  - Blood glucose increased [None]
  - Drug interaction [None]
  - Product taste abnormal [None]
  - Candida infection [None]

NARRATIVE: CASE EVENT DATE: 20160123
